FAERS Safety Report 8894736 (Version 5)
Quarter: 2014Q2

REPORT INFORMATION
  Report Type: Spontaneous
  Country: US (occurrence: US)
  Receive Date: 20121108
  Receipt Date: 20140502
  Transmission Date: 20141212
  Serious: Yes (Hospitalization, Other)
  Sender: FDA-Public Use
  Company Number: US-009507513-1211USA002231

PATIENT
  Sex: Female
  Weight: 72.56 kg

DRUGS (2)
  1. FOSAMAX [Suspect]
     Indication: OSTEOPOROSIS
     Dosage: 70 MG, QW
     Route: 048
     Dates: start: 200107
  2. BONIVA [Concomitant]
     Indication: OSTEOPOROSIS
     Dosage: 150 MG, QM
     Route: 048
     Dates: start: 200509

REACTIONS (16)
  - Intramedullary rod insertion [Unknown]
  - Breast cancer [Unknown]
  - Hysterectomy [Unknown]
  - Femur fracture [Recovered/Resolved]
  - Osteopenia [Unknown]
  - Spinal compression fracture [Unknown]
  - Anxiety [Unknown]
  - Psoriasis [Unknown]
  - Hyperlipidaemia [Unknown]
  - Hypertension [Unknown]
  - Psoriatic arthropathy [Unknown]
  - Spondylolisthesis [Unknown]
  - Spinal osteoarthritis [Unknown]
  - Breast operation [Unknown]
  - Radiotherapy [Unknown]
  - Asthenia [Unknown]
